FAERS Safety Report 12677772 (Version 1)
Quarter: 2016Q3

REPORT INFORMATION
  Report Type: Spontaneous
  Country: US (occurrence: US)
  Receive Date: 20160823
  Receipt Date: 20160823
  Transmission Date: 20161109
  Serious: No
  Sender: FDA-Public Use
  Company Number: US-FRI-1000086108

PATIENT
  Sex: Male

DRUGS (1)
  1. SAPHRIS [Suspect]
     Active Substance: ASENAPINE MALEATE

REACTIONS (5)
  - Product use issue [Unknown]
  - Abnormal behaviour [Unknown]
  - Therapeutic response unexpected [Unknown]
  - Hallucination, auditory [Unknown]
  - Therapeutic response unexpected [Recovered/Resolved]
